FAERS Safety Report 10178690 (Version 2)
Quarter: 2014Q2

REPORT INFORMATION
  Report Type: Spontaneous
  Country: NL (occurrence: NL)
  Receive Date: 20140519
  Receipt Date: 20140519
  Transmission Date: 20141212
  Serious: Yes (Other)
  Sender: FDA-Public Use
  Company Number: NL-ASTRAZENECA-2014SE29859

PATIENT
  Age: 66 Year
  Sex: Male
  Weight: 86 kg

DRUGS (1)
  1. OMEPRAZOL [Suspect]
     Indication: DYSPEPSIA
     Route: 048
     Dates: start: 20140414, end: 20140419

REACTIONS (3)
  - Shock [Unknown]
  - Syncope [Recovered/Resolved]
  - Hypertonia [Recovered/Resolved]
